FAERS Safety Report 13497494 (Version 1)
Quarter: 2017Q2

REPORT INFORMATION
  Report Type: Spontaneous
  Country: US (occurrence: US)
  Receive Date: 20170428
  Receipt Date: 20170428
  Transmission Date: 20170830
  Serious: Yes (Other)
  Sender: FDA-Public Use
  Company Number: US-KERYX BIOPHARMACEUTICALS, INC.-2017US002770

PATIENT
  Sex: Male

DRUGS (1)
  1. AURYXIA [Suspect]
     Active Substance: TETRAFERRIC TRICITRATE DECAHYDRATE
     Indication: HYPERPHOSPHATAEMIA
     Dosage: 2-4 G (2-4 TABLETS), DAILY
     Route: 048

REACTIONS (1)
  - Gastrointestinal haemorrhage [Unknown]
